FAERS Safety Report 8010167-4 (Version None)
Quarter: 2011Q4

REPORT INFORMATION
  Report Type: 
  Country: None (occurrence: None)
  Receive Date: 20111228
  Receipt Date: 20111219
  Transmission Date: 20120403
  Serious: Yes (Death)
  Sender: FDA-Public Use
  Company Number: US-PFIZER INC-2011310265

PATIENT
  Age: 50 Year
  Sex: Female

DRUGS (8)
  1. IBUPROFEN [Suspect]
     Dosage: UNK
     Route: 048
  2. FLUOXETINE [Suspect]
     Dosage: UNK
     Route: 048
  3. ALPRAZOLAM [Suspect]
     Dosage: UNK
     Route: 048
  4. MORPHINE SULFATE [Suspect]
     Dosage: UNK
     Route: 048
  5. OXYCODONE HCL [Suspect]
     Dosage: UNK
     Route: 048
  6. NAPROXEN [Suspect]
     Dosage: UNK
     Route: 048
  7. ACETAMINOPHEN [Suspect]
     Dosage: UNK
     Route: 048
  8. ESZOPICLONE [Suspect]
     Dosage: UNK
     Route: 048

REACTIONS (5)
  - TOXICITY TO VARIOUS AGENTS [None]
  - INTENTIONAL DRUG MISUSE [None]
  - COMPLETED SUICIDE [None]
  - CARDIAC ARREST [None]
  - RESPIRATORY ARREST [None]
